FAERS Safety Report 4831175-8 (Version None)
Quarter: 2005Q4

REPORT INFORMATION
  Report Type: 
  Country: None (occurrence: None)
  Receive Date: 20051116
  Receipt Date: 20051116
  Transmission Date: 20060501
  Serious: Yes (Life-Threatening)
  Sender: FDA-Public Use
  Company Number: None

PATIENT
  Age: 63 Year
  Sex: Female
  Weight: 89 kg

DRUGS (2)
  1. COZAAR [Suspect]
     Indication: DIABETES MELLITUS
     Dosage: 50 MG   DAILY   PO
     Route: 048
  2. COZAAR [Suspect]
     Indication: HYPERTENSION
     Dosage: 50 MG   DAILY   PO
     Route: 048

REACTIONS (3)
  - ANGIONEUROTIC OEDEMA [None]
  - EYE SWELLING [None]
  - SWOLLEN TONGUE [None]
